FAERS Safety Report 6543349-9 (Version None)
Quarter: 2010Q1

REPORT INFORMATION
  Report Type: 
  Country: None (occurrence: None)
  Receive Date: 20100120
  Receipt Date: 20091216
  Transmission Date: 20100710
  Serious: Yes (Other)
  Sender: FDA-Public Use
  Company Number: HU-SANOFI-AVENTIS-2009SA010301

PATIENT

DRUGS (2)
  1. SOLOSTAR [Suspect]
  2. INSULIN GLULISINE [Suspect]

REACTIONS (2)
  - DEVICE MALFUNCTION [None]
  - NO ADVERSE EVENT [None]
